FAERS Safety Report 4570229-0 (Version None)
Quarter: 2005Q1

REPORT INFORMATION
  Report Type: 
  Country: None (occurrence: None)
  Receive Date: 20050126
  Receipt Date: 20050126
  Transmission Date: 20050727
  Serious: Yes (Hospitalization, Other)
  Sender: FDA-Public Use
  Company Number: None

PATIENT
  Age: 82 Year
  Sex: Male
  Weight: 96.6162 kg

DRUGS (1)
  1. AUGMENTIN [Suspect]
     Indication: CHOLECYSTITIS
     Dosage: 875/125 BID
     Dates: start: 20041121, end: 20041123

REACTIONS (5)
  - DERMATITIS EXFOLIATIVE [None]
  - PYREXIA [None]
  - RASH [None]
  - URTICARIA [None]
  - WHITE BLOOD CELL COUNT INCREASED [None]
